FAERS Safety Report 5828906-7 (Version None)
Quarter: 2008Q3

REPORT INFORMATION
  Report Type: 
  Country: None (occurrence: None)
  Receive Date: 20080730
  Receipt Date: 20080722
  Transmission Date: 20090109
  Serious: Yes (Hospitalization)
  Sender: FDA-Public Use
  Company Number: APP200800696

PATIENT
  Age: 55 Year
  Sex: Male

DRUGS (2)
  1. HEPARIN SODIUM INJECTION [Suspect]
     Indication: DIALYSIS
     Dosage: AS REQUIRED, INTRAVENOUS BOLUS; VARYING DOSES, INTRAVENOUS BOLUS
     Route: 040
     Dates: start: 20080702, end: 20080707
  2. HEPARIN SODIUM INJECTION [Suspect]
     Indication: DIALYSIS
     Dosage: AS REQUIRED, INTRAVENOUS BOLUS; VARYING DOSES, INTRAVENOUS BOLUS
     Route: 040
     Dates: start: 20080714, end: 20080714

REACTIONS (1)
  - HEPARIN-INDUCED THROMBOCYTOPENIA [None]
